FAERS Safety Report 20081847 (Version 2)
Quarter: 2021Q4

REPORT INFORMATION
  Report Type: Spontaneous
  Country: DE (occurrence: DE)
  Receive Date: 20211117
  Receipt Date: 20211122
  Transmission Date: 20220303
  Serious: Yes (Hospitalization)
  Sender: FDA-Public Use
  Company Number: DE-ADRED-07049-01

PATIENT
  Age: 72 Year
  Sex: Male
  Weight: 68 kg

DRUGS (14)
  1. BISOPROLOL [Suspect]
     Active Substance: BISOPROLOL
     Indication: Product used for unknown indication
     Dosage: 2.5 MILLIGRAM, QD (2.5 MG, 1-0-0-0)
  2. KALIUM                             /00031401/ [Concomitant]
     Dosage: UNK, SCHEMA
  3. COLECALCIFEROL W/IBANDRONATE SODIUM [Concomitant]
     Dosage: 1000 INTERNATIONAL UNIT, QD (1000 IE, 0-1-0-0)
  4. SPIRONOLACTONE [Concomitant]
     Active Substance: SPIRONOLACTONE
     Dosage: 25 MILLIGRAM, QD (25 MG, 0-1-0-0)
  5. MORPHIN                            /00036302/ [Concomitant]
     Dosage: 10 MILLIGRAM, QD (10 MG, 1-0-0-0)
  6. GLYCOPYRROLATE [Concomitant]
     Active Substance: GLYCOPYRROLATE
     Dosage: 43 MICROGRAM, QD (43 ?G, 1-0-0-0)
  7. ALENDRONATE SODIUM [Concomitant]
     Active Substance: ALENDRONATE SODIUM
     Dosage: 70 MILLIGRAM (70 MG, SCHEMA)
  8. FENOTEROL [Concomitant]
     Active Substance: FENOTEROL
     Dosage: UNK, BEDARF
  9. ACETYLCYSTEINE [Concomitant]
     Active Substance: ACETYLCYSTEINE
     Dosage: 600 MILLIGRAM, QD (600 MG, 1-0-0-0)
  10. SIMVASTATIN [Concomitant]
     Active Substance: SIMVASTATIN
     Dosage: 20 MILLIGRAM, QD (20 MG, 0-0-1-0)
  11. AZITHROMYCIN [Concomitant]
     Active Substance: AZITHROMYCIN
     Dosage: 250 MILLIGRAM, QD (250 MG, 1-0-0-0)
  12. PANTOPRAZOLE [Concomitant]
     Active Substance: PANTOPRAZOLE
     Dosage: 40 MILLIGRAM, QD (40 MG, 1-0-0-0)
  13. TORSEMIDE [Concomitant]
     Active Substance: TORSEMIDE
     Dosage: 10 MILLIGRAM, QD (10 MG, 1-0-0-0)
  14. POLYETHYLENE GLYCOL 3350\POTASSIUM CHLORIDE\SODIUM BICARBONATE\SODIUM [Concomitant]
     Active Substance: POLYETHYLENE GLYCOL 3350\POTASSIUM CHLORIDE\SODIUM BICARBONATE\SODIUM CHLORIDE\SODIUM SULFATE
     Dosage: 1 DOSAGE FORM, BID (1-1-0-0)

REACTIONS (11)
  - Acute respiratory failure [Unknown]
  - Dyspnoea [Unknown]
  - Renal impairment [Unknown]
  - Electrocardiogram abnormal [Unknown]
  - Oedema peripheral [Unknown]
  - Anaemia [Unknown]
  - Weight increased [Unknown]
  - General physical health deterioration [Unknown]
  - Hyperglycaemia [Unknown]
  - Condition aggravated [Unknown]
  - Hypotension [Unknown]
